FAERS Safety Report 15500160 (Version 1)
Quarter: 2018Q4

REPORT INFORMATION
  Report Type: Report from Study
  Country: US (occurrence: US)
  Receive Date: 20181015
  Receipt Date: 20181015
  Transmission Date: 20190205
  Serious: Yes (Other)
  Sender: FDA-Public Use
  Company Number: US-GILEAD-2018-0368370

PATIENT
  Age: 74 Year
  Sex: Female

DRUGS (1)
  1. RANOLAZINE. [Suspect]
     Active Substance: RANOLAZINE
     Indication: CARDIAC DISORDER
     Dosage: UNK
     Route: 048
     Dates: start: 20180525

REACTIONS (2)
  - Osteoporosis [Not Recovered/Not Resolved]
  - Off label use [Not Recovered/Not Resolved]

NARRATIVE: CASE EVENT DATE: 2018
